FAERS Safety Report 6153105-1 (Version None)
Quarter: 2009Q2

REPORT INFORMATION
  Report Type: 
  Country: None (occurrence: None)
  Receive Date: 20090409
  Receipt Date: 20090327
  Transmission Date: 20091009
  Serious: Yes (Other)
  Sender: FDA-Public Use
  Company Number: 231730K08USA

PATIENT
  Age: 29 Year
  Sex: Female
  Weight: 113 kg

DRUGS (9)
  1. REBIF [Suspect]
     Indication: MULTIPLE SCLEROSIS
     Dates: start: 20070701, end: 20071101
  2. STEROID (CORTICOSTEROID NOS) [Suspect]
     Indication: ASTHMA
  3. ZEGERID (OMEPRAZOLE) [Concomitant]
  4. ALVESCO [Concomitant]
  5. PRILOSEC [Concomitant]
  6. MECLIZINE [Concomitant]
  7. RANITIDINE [Concomitant]
  8. SINGULAIR (MONTELUKAST /01362601/) [Concomitant]
  9. CRANBERRY TABLETS (VACCINIUM MACROCARPON) [Concomitant]

REACTIONS (6)
  - BACK PAIN [None]
  - DIABETES MELLITUS [None]
  - DYSMENORRHOEA [None]
  - MENORRHAGIA [None]
  - NEPHROLITHIASIS [None]
  - URINARY INCONTINENCE [None]
